FAERS Safety Report 15196125 (Version 3)
Quarter: 2018Q3

REPORT INFORMATION
  Report Type: Report from Study
  Country: US (occurrence: US)
  Receive Date: 20180725
  Receipt Date: 20180924
  Transmission Date: 20181010
  Serious: Yes (Other)
  Sender: FDA-Public Use
  Company Number: US-PFIZER INC-2018152944

PATIENT
  Age: 40 Year
  Sex: Female

DRUGS (1)
  1. IBRANCE [Suspect]
     Active Substance: PALBOCICLIB
     Indication: BREAST CANCER FEMALE
     Dosage: 125 MG, CYCLIC (DAILY/3 WEEKS ON, ONE WEEK OFF) (21 ON, 7 OFF)
     Route: 048
     Dates: start: 20180328

REACTIONS (9)
  - Constipation [Recovering/Resolving]
  - Bone marrow failure [Not Recovered/Not Resolved]
  - Diarrhoea [Unknown]
  - Lip pain [Recovered/Resolved]
  - Leukopenia [Unknown]
  - Neutropenia [Recovering/Resolving]
  - Drug dose omission [Unknown]
  - Headache [Recovered/Resolved]
  - Oral pain [Recovered/Resolved]

NARRATIVE: CASE EVENT DATE: 2018
